FAERS Safety Report 8912350 (Version 2)
Quarter: 2013Q3

REPORT INFORMATION
  Report Type: Report from Study
  Country: JP (occurrence: JP)
  Receive Date: 20121116
  Receipt Date: 20130826
  Transmission Date: 20140515
  Serious: Yes (Other)
  Sender: FDA-Public Use
  Company Number: JP-VERTEX PHARMACEUTICAL INC.-2012-024513

PATIENT
  Age: 62 Year
  Sex: Female

DRUGS (10)
  1. VX-950 (TELAPREVIR) [Suspect]
     Indication: CHRONIC HEPATITIS C
     Dosage: 1500 MG, QD
     Route: 048
     Dates: start: 20120305, end: 20120603
  2. REBETOL [Suspect]
     Indication: CHRONIC HEPATITIS C
     Dosage: 400 MG, QD
     Route: 048
     Dates: start: 20120305, end: 20120408
  3. REBETOL [Suspect]
     Dosage: 200 MG, QD
     Route: 048
     Dates: start: 20120409, end: 20120521
  4. REBETOL [Suspect]
     Dosage: 400 MG, QD
     Route: 048
     Dates: start: 20120522, end: 20120820
  5. PEGINTRON [Suspect]
     Indication: CHRONIC HEPATITIS C
     Dosage: 1.5 ?G/KG, QW
     Route: 058
     Dates: start: 20120305, end: 20120820
  6. OLMETEC [Concomitant]
     Dosage: 20 MG, QD
     Route: 048
     Dates: start: 20120305
  7. CONFATANIN [Concomitant]
     Dosage: UNK, PRN
     Route: 048
     Dates: start: 20120306
  8. DICLOFENAC [Concomitant]
     Dosage: QS/DAY
     Route: 051
     Dates: start: 20120604
  9. SHAKUYAKUKANZOTO [Concomitant]
     Dosage: 7.5 G, QD
     Route: 048
     Dates: start: 20120604, end: 20120722
  10. URSO [Concomitant]
     Dosage: 300 MG, QD
     Route: 048
     Dates: start: 20120126

REACTIONS (1)
  - White blood cell count decreased [Recovered/Resolved]
